FAERS Safety Report 9608452 (Version 3)
Quarter: 2013Q4

REPORT INFORMATION
  Report Type: Spontaneous
  Country: US (occurrence: US)
  Receive Date: 20131009
  Receipt Date: 20131108
  Transmission Date: 20140711
  Serious: Yes (Hospitalization)
  Sender: FDA-Public Use
  Company Number: US-PFIZER INC-2013188107

PATIENT
  Age: 66 Year
  Sex: Female

DRUGS (8)
  1. SUTENT [Suspect]
     Indication: RENAL CANCER
     Dosage: 50 MG, UNK
     Dates: start: 20130327
  2. ASPIRIN [Concomitant]
     Dosage: UNK
  3. CALCIUM 600+D3 [Concomitant]
     Dosage: UNK
  4. HYDROCHLOROTHIAZIDE [Concomitant]
     Dosage: UNK
  5. HYDROCODONE - ACETAMINOPHEN [Concomitant]
     Dosage: UNK
  6. LEVEMIR FLEXPEN [Concomitant]
     Dosage: UNK
  7. NOVOLOG MIX 70/30 [Concomitant]
     Dosage: UNK
  8. ZOFRAN [Concomitant]
     Dosage: UNK

REACTIONS (1)
  - Malaise [Unknown]
